FAERS Safety Report 7332464-8 (Version None)
Quarter: 2011Q1

REPORT INFORMATION
  Report Type: 
  Country: None (occurrence: None)
  Receive Date: 20110304
  Receipt Date: 20110228
  Transmission Date: 20110831
  Serious: Yes (Hospitalization, Disabling)
  Sender: FDA-Public Use
  Company Number: US-BRISTOL-MYERS SQUIBB COMPANY-15574825

PATIENT
  Age: 70 Year
  Sex: Male

DRUGS (3)
  1. ASA [Suspect]
     Route: 065
  2. COUMADIN [Suspect]
     Indication: ATRIAL FIBRILLATION
     Dosage: AT BED TIME
     Route: 065
     Dates: start: 20100101
  3. REVLIMID [Suspect]
     Indication: ACUTE MYELOID LEUKAEMIA
     Dosage: THERAPY DATES 06DEC10 TO 20DEC10, STILL ONGOING
     Route: 048
     Dates: start: 20101206

REACTIONS (5)
  - RASH PRURITIC [None]
  - HAEMORRHAGE [None]
  - SKIN DISCOLOURATION [None]
  - FATIGUE [None]
  - PLATELET COUNT DECREASED [None]
